FAERS Safety Report 6590970-8 (Version None)
Quarter: 2010Q1

REPORT INFORMATION
  Report Type: 
  Country: None (occurrence: None)
  Receive Date: 20100216
  Receipt Date: 20090826
  Transmission Date: 20100710
  Serious: No
  Sender: FDA-Public Use
  Company Number: 2009-00571

PATIENT
  Age: 62 Year
  Sex: Female
  Weight: 111.1313 kg

DRUGS (1)
  1. ZICAM COLD REMEDY GEL SWABS [Suspect]
     Dosage: BID, 6-7 DOSES; END OF MAY - EARLY JUNE

REACTIONS (4)
  - AGEUSIA [None]
  - ANOSMIA [None]
  - NASAL DRYNESS [None]
  - WEIGHT DECREASED [None]
